FAERS Safety Report 18005571 (Version 1)
Quarter: 2020Q3

REPORT INFORMATION
  Report Type: Spontaneous
  Country: AU (occurrence: AU)
  Receive Date: 20200710
  Receipt Date: 20200710
  Transmission Date: 20201103
  Serious: Yes (Other)
  Sender: FDA-Public Use
  Company Number: NVSC2020AU184664

PATIENT
  Age: 73 Year
  Sex: Male

DRUGS (1)
  1. METHOTREXATE. [Suspect]
     Active Substance: METHOTREXATE
     Indication: SYSTEMIC LUPUS ERYTHEMATOSUS
     Route: 065

REACTIONS (6)
  - Lung adenocarcinoma stage IV [Unknown]
  - Cough [Unknown]
  - Chest discomfort [Unknown]
  - Lymphadenopathy mediastinal [Unknown]
  - Dyspnoea [Unknown]
  - Weight decreased [Unknown]
